FAERS Safety Report 9869592 (Version 2)
Quarter: 2014Q1

REPORT INFORMATION
  Report Type: Spontaneous
  Country: US (occurrence: US)
  Receive Date: 20140205
  Receipt Date: 20140210
  Transmission Date: 20141002
  Serious: No
  Sender: FDA-Public Use
  Company Number: US-PFIZER INC-2014031034

PATIENT
  Age: 85 Year
  Sex: Female
  Weight: 65.76 kg

DRUGS (1)
  1. LIPITOR [Suspect]
     Indication: BLOOD CHOLESTEROL
     Dosage: 10 MG, 1X/DAY

REACTIONS (3)
  - Blood glucose increased [Unknown]
  - Mood altered [Unknown]
  - Arthralgia [Unknown]
